FAERS Safety Report 4548713-5 (Version None)
Quarter: 2005Q1

REPORT INFORMATION
  Report Type: 
  Country: None (occurrence: None)
  Receive Date: 20050106
  Receipt Date: 20050106
  Transmission Date: 20050727
  Serious: Yes (Other)
  Sender: FDA-Public Use
  Company Number: None

PATIENT
  Age: 61 Year
  Sex: Female
  Weight: 66.6 kg

DRUGS (8)
  1. AVASTIN [Suspect]
     Indication: BREAST CANCER
     Dosage: 10MG/KG IV ON D1, D15 EVERY CYCLE
     Route: 042
     Dates: start: 20040809
  2. CYTOXAN [Suspect]
     Indication: BREAST CANCER
     Dosage: 50 MG ORAL QD
     Route: 048
     Dates: start: 20040809
  3. METHOTREXATE [Suspect]
     Indication: BREAST CANCER
     Dosage: 2.5MG PO BID 2 DAYS OF EACH WEEK
     Route: 048
     Dates: start: 20040809
  4. ATIVAN [Concomitant]
  5. EFFEXOR [Concomitant]
  6. LISINOPRIL [Concomitant]
  7. ZYPREXA [Concomitant]
  8. OXYCODONE HCL [Concomitant]

REACTIONS (6)
  - APHONIA [None]
  - DRY THROAT [None]
  - DYSPHONIA [None]
  - LARYNGITIS [None]
  - PHARYNX DISCOMFORT [None]
  - VOCAL CORD DISORDER [None]
